FAERS Safety Report 6967477-9 (Version None)
Quarter: 2010Q3

REPORT INFORMATION
  Report Type: 
  Country: None (occurrence: None)
  Receive Date: 20100907
  Receipt Date: 20100825
  Transmission Date: 20110219
  Serious: Yes (Death)
  Sender: FDA-Public Use
  Company Number: UG-ABBOTT-10P-167-0660932-00

PATIENT
  Sex: Female

DRUGS (3)
  1. ALUVIA TABLETS [Suspect]
     Indication: HIV INFECTION
     Route: 048
     Dates: start: 20100428
  2. RALTEGRAVIR [Concomitant]
     Indication: HIV INFECTION
     Dates: start: 20100428
  3. VITAMIN K TAB [Concomitant]
     Indication: PRODUCT USED FOR UNKNOWN INDICATION
     Dates: start: 20100626, end: 20100629

REACTIONS (3)
  - BACTERIAL TOXAEMIA [None]
  - ELECTROLYTE IMBALANCE [None]
  - MALNUTRITION [None]
